FAERS Safety Report 9895968 (Version 2)
Quarter: 2014Q1

REPORT INFORMATION
  Report Type: Spontaneous
  Country: US (occurrence: US)
  Receive Date: 20140213
  Receipt Date: 20140213
  Transmission Date: 20141002
  Serious: No
  Sender: FDA-Public Use
  Company Number: US-BRISTOL-MYERS SQUIBB COMPANY-17407545

PATIENT
  Age: 64 Year
  Sex: Male
  Weight: 87.07 kg

DRUGS (10)
  1. ABATACEPT SUBQ INJECTION 125MG/ML [Suspect]
     Indication: RHEUMATOID ARTHRITIS
     Dosage: 1DF:125 MG/ML
     Route: 058
     Dates: end: 201212
  2. ENBREL [Concomitant]
  3. FOLIC ACID [Concomitant]
  4. HYDROXYCHLOROQUINE [Concomitant]
  5. SIMVASTATIN [Concomitant]
  6. LOSARTAN [Concomitant]
  7. METFORMIN [Concomitant]
  8. METHOTREXATE [Concomitant]
  9. NEXIUM [Concomitant]
  10. OMEGA-3 [Concomitant]

REACTIONS (1)
  - Pruritus [Unknown]
